FAERS Safety Report 16848119 (Version 2)
Quarter: 2019Q4

REPORT INFORMATION
  Report Type: Spontaneous
  Country: CO (occurrence: CO)
  Receive Date: 20190925
  Receipt Date: 20191226
  Transmission Date: 20200122
  Serious: Yes (Other)
  Sender: FDA-Public Use
  Company Number: CO-AMGEN-COLSP2019156990

PATIENT
  Age: 68 Year
  Sex: Female

DRUGS (1)
  1. ENBREL [Suspect]
     Active Substance: ETANERCEPT
     Indication: RHEUMATOID ARTHRITIS
     Dosage: UNK, WEEKLY
     Route: 065
     Dates: start: 2006, end: 2018

REACTIONS (6)
  - Arthropathy [Unknown]
  - Pain [Unknown]
  - Nosocomial infection [Unknown]
  - Joint dislocation [Unknown]
  - Post procedural complication [Unknown]
  - Femur fracture [Unknown]

NARRATIVE: CASE EVENT DATE: 2016
